FAERS Safety Report 5846492-2 (Version None)
Quarter: 2008Q3

REPORT INFORMATION
  Report Type: 
  Country: None (occurrence: None)
  Receive Date: 20080815
  Receipt Date: 20080811
  Transmission Date: 20090109
  Serious: Yes (Death, Hospitalization)
  Sender: FDA-Public Use
  Company Number: JP-WYE-H00525007

PATIENT
  Sex: Male
  Weight: 65 kg

DRUGS (7)
  1. MYLOTARG [Suspect]
     Indication: ACUTE MYELOID LEUKAEMIA RECURRENT
     Route: 041
     Dates: start: 20060808, end: 20060808
  2. MYLOTARG [Suspect]
     Route: 041
     Dates: start: 20061023, end: 20061023
  3. FUNGUARD [Concomitant]
     Indication: PROPHYLAXIS
     Route: 041
     Dates: start: 20060811, end: 20060818
  4. FUNGUARD [Concomitant]
     Route: 041
     Dates: start: 20061028, end: 20061101
  5. CEFEPIME HYDROCHLORIDE [Concomitant]
     Indication: PROPHYLAXIS
     Route: 041
     Dates: start: 20060808, end: 20060811
  6. CEFEPIME HYDROCHLORIDE [Concomitant]
     Route: 042
     Dates: start: 20061025, end: 20061030
  7. COTRIM [Concomitant]
     Indication: PROPHYLAXIS
     Dosage: 1 DF/DAY
     Route: 048
     Dates: start: 20050409, end: 20061108

REACTIONS (2)
  - CEREBELLAR HAEMORRHAGE [None]
  - SEPSIS [None]
